FAERS Safety Report 12823361 (Version 2)
Quarter: 2017Q3

REPORT INFORMATION
  Report Type: Spontaneous
  Country: IT (occurrence: IT)
  Receive Date: 20161006
  Receipt Date: 20170810
  Transmission Date: 20171127
  Serious: Yes (Hospitalization, Other)
  Sender: FDA-Public Use
  Company Number: IT-MYLANLABS-2016M1042224

PATIENT

DRUGS (2)
  1. SILDENAFIL. [Suspect]
     Active Substance: SILDENAFIL
     Indication: LIBIDO INCREASED
     Dosage: UNK UNK, TOTAL
     Route: 048
  2. SODIUM OXYBATE. [Concomitant]
     Active Substance: SODIUM OXYBATE
     Indication: LIBIDO INCREASED
     Dosage: UNK UNK, TOTAL
     Route: 048

REACTIONS (7)
  - Headache [Recovered/Resolved]
  - Sinus tachycardia [Recovered/Resolved]
  - Chest pain [Recovered/Resolved]
  - Dyspnoea [Recovered/Resolved]
  - Product preparation error [Unknown]
  - Toxicity to various agents [Recovered/Resolved]
  - Dizziness [Recovered/Resolved]
